FAERS Safety Report 6671005-5 (Version None)
Quarter: 2010Q2

REPORT INFORMATION
  Report Type: 
  Country: None (occurrence: None)
  Receive Date: 20100407
  Receipt Date: 20100326
  Transmission Date: 20101027
  Serious: Yes (Hospitalization)
  Sender: FDA-Public Use
  Company Number: PHHY2010FR19490

PATIENT
  Sex: Female

DRUGS (15)
  1. EXJADE [Suspect]
     Dosage: 1000 MG, DAILY
     Route: 048
     Dates: start: 20091106
  2. PEGASYS [Suspect]
     Dosage: 1 SC WEEKLY
     Route: 058
     Dates: start: 20090814, end: 20091130
  3. EPREX [Concomitant]
     Dosage: 40000 IU WEEKLY
  4. MIANSERIN [Concomitant]
     Dosage: 60 MG DAILY
  5. POTASSIUM CHLORIDE [Concomitant]
     Dosage: 3 DF DAILY
  6. VASTAREL [Concomitant]
     Dosage: 35 MG
  7. RILMENIDINE [Concomitant]
     Dosage: 1 DF, QD
  8. RAMIPRIL [Concomitant]
     Dosage: 2.5 MG, QD
  9. NEURONTIN [Concomitant]
     Dosage: 900 MG DAILY
  10. VEINAMITOL [Concomitant]
  11. ZOPICLONE [Concomitant]
  12. PARACETAMOL [Concomitant]
     Dosage: 1 G
  13. DIAMICRON [Concomitant]
     Dosage: 30 MG, BID
  14. GLUCOR [Concomitant]
     Dosage: 50 MG, TID
  15. FENOFIBRATE [Concomitant]

REACTIONS (8)
  - ANAEMIA [None]
  - BLOOD DISORDER [None]
  - FAECAL INCONTINENCE [None]
  - GAIT DISTURBANCE [None]
  - MUSCULAR WEAKNESS [None]
  - PANCYTOPENIA [None]
  - PURPURA [None]
  - THROMBOCYTOPENIA [None]
